FAERS Safety Report 19257013 (Version 1)
Quarter: 2021Q2

REPORT INFORMATION
  Report Type: Spontaneous
  Country: FR (occurrence: FR)
  Receive Date: 20210513
  Receipt Date: 20210513
  Transmission Date: 20210717
  Serious: Yes (Hospitalization)
  Sender: FDA-Public Use
  Company Number: FR-009507513-2105FRA001383

PATIENT
  Age: 70 Year
  Sex: Male
  Weight: 125 kg

DRUGS (8)
  1. PANTOPRAZOLE [Concomitant]
     Active Substance: PANTOPRAZOLE
  2. IMIPENEM AND CILASTATIN [Suspect]
     Active Substance: CILASTATIN SODIUM\IMIPENEM
     Indication: UPPER AERODIGESTIVE TRACT INFECTION
     Route: 042
     Dates: start: 20210309, end: 20210311
  3. CASPOFUNGIN ACETATE. [Suspect]
     Active Substance: CASPOFUNGIN ACETATE
     Indication: FUNGAL INFECTION
     Route: 042
     Dates: start: 20210310, end: 20210311
  4. VANCOMYCIN [Suspect]
     Active Substance: VANCOMYCIN
     Indication: UPPER AERODIGESTIVE TRACT INFECTION
     Route: 042
     Dates: start: 20210309, end: 20210311
  5. CATAPRESSAN [Suspect]
     Active Substance: CLONIDINE
     Indication: HYPERTENSION
     Dates: start: 20210309, end: 20210310
  6. PERFALGAN [Concomitant]
     Active Substance: ACETAMINOPHEN
  7. NOREPINEPHRINE. [Concomitant]
     Active Substance: NOREPINEPHRINE
  8. HEPARIN SODIUM. [Concomitant]
     Active Substance: HEPARIN SODIUM

REACTIONS (2)
  - Cutaneous vasculitis [Recovered/Resolved]
  - Eosinophilia [Recovered/Resolved]

NARRATIVE: CASE EVENT DATE: 20210310
